FAERS Safety Report 8353842-4 (Version None)
Quarter: 2012Q2

REPORT INFORMATION
  Report Type: 
  Country: None (occurrence: None)
  Receive Date: 20120511
  Receipt Date: 20120105
  Transmission Date: 20120825
  Serious: No
  Sender: FDA-Public Use
  Company Number: US-GLAXOSMITHKLINE-A0960239A

PATIENT
  Age: 62 Year
  Sex: Female

DRUGS (2)
  1. AMBIEN [Suspect]
     Dosage: 5MG AS REQUIRED
     Route: 048
     Dates: start: 20120103
  2. TYKERB [Suspect]
     Indication: BREAST CANCER
     Route: 048
     Dates: start: 20111229

REACTIONS (3)
  - DRY SKIN [None]
  - EYELID OEDEMA [None]
  - ASTHENIA [None]
